FAERS Safety Report 9422131 (Version 1)
Quarter: 2013Q3

REPORT INFORMATION
  Report Type: Spontaneous
  Country: US (occurrence: US)
  Receive Date: 20130726
  Receipt Date: 20130726
  Transmission Date: 20140515
  Serious: Yes (Other)
  Sender: FDA-Public Use
  Company Number: US-PFIZER INC-2013216402

PATIENT
  Age: 63 Year
  Sex: Female

DRUGS (3)
  1. LYRICA [Suspect]
     Indication: SCIATICA
     Dosage: 1 DF, 1X/DAY
     Route: 048
  2. LYRICA [Suspect]
     Indication: ARTHRITIS
  3. PREMARIN [Concomitant]
     Dosage: 3 DF, UNK

REACTIONS (5)
  - Off label use [Unknown]
  - Abasia [Unknown]
  - Limb discomfort [Unknown]
  - Back pain [Unknown]
  - Drug effect incomplete [Unknown]
